FAERS Safety Report 15097080 (Version 1)
Quarter: 2018Q3

REPORT INFORMATION
  Report Type: Report from Study
  Country: US (occurrence: US)
  Receive Date: 20180702
  Receipt Date: 20180702
  Transmission Date: 20181010
  Serious: Yes (Other)
  Sender: FDA-Public Use
  Company Number: US-BAYER-2018-099648

PATIENT
  Age: 58 Year
  Sex: Female

DRUGS (1)
  1. STIVARGA [Suspect]
     Active Substance: REGORAFENIB
     Indication: METASTASES TO LUNG
     Dosage: TAKE 2 TABLETS ONCE DAILY, INCREASE TO 4 TABLETS DAILY FOR 2 WEEKS, THEN 1 WEEK OFF
     Route: 048
     Dates: start: 20180510, end: 2018

REACTIONS (6)
  - Off label use [None]
  - Neuropathy peripheral [Recovered/Resolved]
  - Headache [Recovered/Resolved]
  - Product use in unapproved indication [None]
  - Adverse drug reaction [None]
  - Palmar-plantar erythrodysaesthesia syndrome [Not Recovered/Not Resolved]
